FAERS Safety Report 8710265 (Version 2)
Quarter: 2013Q4

REPORT INFORMATION
  Report Type: Report from Study
  Country: US (occurrence: US)
  Receive Date: 20120807
  Receipt Date: 20131101
  Transmission Date: 20140711
  Serious: No
  Sender: FDA-Public Use
  Company Number: US-009507513-1207USA007700

PATIENT
  Sex: Female
  Weight: 68.93 kg

DRUGS (5)
  1. VICTRELIS [Suspect]
     Indication: CHRONIC HEPATITIS C
     Dosage: 4 DF, UNK
     Route: 048
  2. CELEXA [Concomitant]
  3. UBIDECARENONE [Concomitant]
  4. CALCIUM (UNSPECIFIED) [Concomitant]
  5. ZYRTEC [Concomitant]

REACTIONS (3)
  - Dry mouth [Unknown]
  - Dysgeusia [Unknown]
  - Nausea [Unknown]
